FAERS Safety Report 9019859 (Version 1)
Quarter: 2013Q1

REPORT INFORMATION
  Report Type: Report from Study
  Country: JP (occurrence: JP)
  Receive Date: 20130118
  Receipt Date: 20130118
  Transmission Date: 20140127
  Serious: Yes (Other)
  Sender: FDA-Public Use
  Company Number: JP-PFIZER INC-2013018691

PATIENT
  Age: 11 Month
  Sex: Female

DRUGS (12)
  1. SOLU-MEDROL [Suspect]
     Indication: PROPHYLAXIS AGAINST TRANSPLANT REJECTION
     Dosage: 150 MG, 1X/DAY
     Route: 042
     Dates: start: 20051214, end: 20060107
  2. MEDROL [Suspect]
     Indication: PROPHYLAXIS AGAINST TRANSPLANT REJECTION
     Dosage: 3 MG, 1X/DAY
     Route: 048
     Dates: start: 20060110, end: 20060127
  3. MYCOPHENOLATE [Suspect]
     Indication: PROPHYLAXIS AGAINST TRANSPLANT REJECTION
     Dosage: 250 MG, 1X/DAY
     Route: 048
     Dates: start: 20051227, end: 20060125
  4. MYCOPHENOLATE [Suspect]
     Dosage: 500 MG, 1X/DAY
     Route: 048
     Dates: start: 20060206, end: 20060414
  5. MYCOPHENOLATE [Suspect]
     Dosage: 375 MG, 1X/DAY
     Route: 048
     Dates: start: 20060415, end: 20060522
  6. PROGRAF [Concomitant]
     Indication: PROPHYLAXIS AGAINST TRANSPLANT REJECTION
     Dosage: 2 MG, 1X/DAY
     Route: 042
     Dates: start: 20051214, end: 20060206
  7. PROGRAF [Concomitant]
     Dosage: 5 MG, 1X/DAY
     Route: 048
     Dates: start: 20060207
  8. ALLOID [Concomitant]
     Indication: PROPHYLAXIS
     Dosage: 64 ML, 1X/DAY
     Route: 048
  9. BIOFERMIN [Concomitant]
     Indication: PROPHYLAXIS
     Dosage: 3 G, 1X/DAY
     Route: 048
  10. ULCERLMIN [Concomitant]
     Indication: PROPHYLAXIS
     Dosage: 2.7 G, 1X/DAY
     Route: 048
     Dates: start: 20060102
  11. URSO [Concomitant]
     Indication: PROPHYLAXIS
     Dosage: 240 MG, 1X/DAY
     Route: 048
  12. MARZULENE S [Concomitant]
     Indication: PROPHYLAXIS
     Dosage: 1.8 G, 1X/DAY
     Route: 048
     Dates: start: 20060102

REACTIONS (2)
  - Cytomegalovirus infection [Recovered/Resolved]
  - Portal vein thrombosis [Recovered/Resolved]
